FAERS Safety Report 10143196 (Version 1)
Quarter: 2014Q2

REPORT INFORMATION
  Report Type: Spontaneous
  Country: US (occurrence: US)
  Receive Date: 20140430
  Receipt Date: 20140430
  Transmission Date: 20141212
  Serious: Yes (Hospitalization)
  Sender: FDA-Public Use
  Company Number: US-ELI_LILLY_AND_COMPANY-US201404007665

PATIENT
  Sex: Male

DRUGS (7)
  1. CIALIS [Suspect]
     Indication: ERECTILE DYSFUNCTION
     Dosage: 10 MG, PRN
     Dates: end: 20140324
  2. CIALIS [Suspect]
     Dosage: 5 MG, QD
     Dates: start: 20140408
  3. FLOMAX [Concomitant]
  4. LISINOPRIL [Concomitant]
     Dosage: 10 MG, UNK
  5. PLAVIX [Concomitant]
  6. METOPROLOL [Concomitant]
     Dosage: 50 MG, UNK
  7. ASPIRIN [Concomitant]
     Dosage: 325 MG, UNK

REACTIONS (1)
  - Coronary artery stenosis [Recovered/Resolved]
